FAERS Safety Report 24834787 (Version 3)
Quarter: 2025Q1

REPORT INFORMATION
  Report Type: Spontaneous
  Country: GB (occurrence: GB)
  Receive Date: 20250113
  Receipt Date: 20250127
  Transmission Date: 20250409
  Serious: Yes (Other)
  Sender: MYLAN
  Company Number: GB-MYLANLABS-2025M1002080

PATIENT
  Sex: Female

DRUGS (5)
  1. CLOZARIL [Suspect]
     Active Substance: CLOZAPINE
     Indication: Schizophrenia
     Dosage: 175 MILLIGRAM, QD (DAILY)
     Route: 048
     Dates: start: 20140124
  2. SERTRALINE [Concomitant]
     Active Substance: SERTRALINE HYDROCHLORIDE
     Dosage: 200 MILLILITER, QD (DAILY)
     Route: 065
     Dates: start: 20160219
  3. BISOPROLOL [Concomitant]
     Active Substance: BISOPROLOL
     Dosage: 2.5 MILLILITER, QD (DAILY)
     Route: 065
     Dates: start: 20190528
  4. MIRABEGRON [Concomitant]
     Active Substance: MIRABEGRON
     Dosage: 50 MILLILITER, QD (MODIFIED RELEASE, DAILY)
     Route: 065
     Dates: start: 20230606
  5. LANSOPRAZOLE [Concomitant]
     Active Substance: LANSOPRAZOLE
     Dosage: 30 MILLIGRAM, QD (DAILY)
     Route: 065
     Dates: start: 20160629

REACTIONS (5)
  - Terminal state [Unknown]
  - Psychotic symptom [Unknown]
  - Poor venous access [Unknown]
  - Respiratory disorder [Unknown]
  - Off label use [Unknown]

NARRATIVE: CASE EVENT DATE: 20240627
